FAERS Safety Report 9193356 (Version 2)
Quarter: 2013Q2

REPORT INFORMATION
  Report Type: Spontaneous
  Country: US (occurrence: None)
  Receive Date: 20120703
  Receipt Date: 20121031
  Transmission Date: 20140414
  Serious: Yes (Other)
  Sender: FDA-Public Use
  Company Number: PHEH2012US008504

PATIENT
  Sex: Male

DRUGS (9)
  1. GILENYA [Suspect]
     Indication: MULTIPLE SCLEROSIS
     Route: 048
     Dates: start: 2011
  2. ASPIRIN (ACETYLSALICYLIC ACID) [Concomitant]
  3. CENTRUM (MINERALS NOS, VITAMINS NOS) [Concomitant]
  4. OSTEO-BIFLEX (CHONDROITIN SULFATE, GLUCOSAMINE HYDROCHLORIDE) [Concomitant]
  5. OMEGA 3 (FISH OIL) [Concomitant]
  6. NIACIN (NICOTINIC ACID) [Concomitant]
  7. SEORENATOL [Concomitant]
  8. PREBIOTIC FIBER [Concomitant]
  9. COQ10 [Concomitant]

REACTIONS (4)
  - Blood pressure diastolic increased [None]
  - Heart rate increased [None]
  - Hypoaesthesia [None]
  - Drug ineffective [None]
